FAERS Safety Report 8494267-0 (Version None)
Quarter: 2012Q3

REPORT INFORMATION
  Report Type: 
  Country: None (occurrence: None)
  Receive Date: 20120709
  Receipt Date: 20120706
  Transmission Date: 20120928
  Serious: Yes (Death, Life-Threatening, Hospitalization)
  Sender: FDA-Public Use
  Company Number: PHHY2012BR058058

PATIENT
  Sex: Male

DRUGS (1)
  1. EXELON [Suspect]
     Indication: AMNESIA
     Dosage: 9MG/5CM2 1 ADHESIVE DAILY
     Route: 062
     Dates: start: 20080101, end: 20111201

REACTIONS (3)
  - COMA [None]
  - ANEURYSM [None]
  - BRAIN DEATH [None]
